FAERS Safety Report 5622259-5 (Version None)
Quarter: 2008Q1

REPORT INFORMATION
  Report Type: 
  Country: None (occurrence: None)
  Receive Date: 20080211
  Receipt Date: 20080201
  Transmission Date: 20080703
  Serious: Yes (Hospitalization)
  Sender: FDA-Public Use
  Company Number: AU-ROCHE-544842

PATIENT
  Age: 56 Year
  Sex: Male

DRUGS (8)
  1. DIAZEPAM [Suspect]
     Indication: DRUG USE FOR UNKNOWN INDICATION
     Dosage: DOSE UNSPECIFIED.
     Route: 030
     Dates: start: 20071123, end: 20071123
  2. OMEPRAZOLE [Concomitant]
     Dosage: DOSE UNSPECIFIED.
     Route: 048
  3. VALPROATE SODIUM [Concomitant]
     Dosage: DOSE UNSPECIFIED.
     Route: 048
  4. ACCURETIC [Concomitant]
     Dosage: DOSE UNSPECIFIED.
     Route: 048
  5. METOPROLOL TARTRATE [Concomitant]
     Dosage: DOSE UNSPECIFIED.
     Route: 048
  6. SEROQUEL [Concomitant]
     Dosage: DOSE UNSPECIFIED.
     Route: 048
  7. LIPITOR [Concomitant]
     Dosage: DOSE UNSPECIFIED.
     Route: 048
  8. ACETAMINOPHEN [Concomitant]
     Dosage: DOSE UNSPECIFIED.
     Route: 048

REACTIONS (1)
  - SYNCOPE [None]
